FAERS Safety Report 4403816-0 (Version None)
Quarter: 2004Q3

REPORT INFORMATION
  Report Type: 
  Country: None (occurrence: None)
  Receive Date: 20040719
  Receipt Date: 20040709
  Transmission Date: 20050211
  Serious: Yes (Disabling, Other)
  Sender: FDA-Public Use
  Company Number: 2004216994BE

PATIENT
  Age: 66 Year
  Sex: Female
  Weight: 89 kg

DRUGS (5)
  1. AROMASIN [Suspect]
     Indication: BREAST CANCER
     Dosage: 25 MG, QD, ORAL
     Route: 048
     Dates: start: 20030110, end: 20040410
  2. TRAMADOL HCL [Concomitant]
  3. EMCORETIC [Concomitant]
  4. COVERSYL (PERINDOPRIL) [Concomitant]
  5. ACETAMINOPHEN [Concomitant]

REACTIONS (7)
  - ARTHRALGIA [None]
  - DYSGRAPHIA [None]
  - GAIT DISTURBANCE [None]
  - IMPAIRED DRIVING ABILITY [None]
  - MUSCLE CRAMP [None]
  - PAIN IN EXTREMITY [None]
  - POLYNEUROPATHY [None]
